FAERS Safety Report 16995050 (Version 1)
Quarter: 2019Q4

REPORT INFORMATION
  Report Type: Report from Study
  Country: None (occurrence: CA)
  Receive Date: 20191105
  Receipt Date: 20191105
  Transmission Date: 20200122
  Serious: Yes (Other)
  Sender: FDA-Public Use
  Company Number: CA-ABBVIE-19K-028-2987874-00

PATIENT
  Age: 54 Year
  Sex: Female

DRUGS (3)
  1. HUMIRA [Suspect]
     Active Substance: ADALIMUMAB
     Indication: CROHN^S DISEASE
     Route: 058
     Dates: start: 20130328, end: 2018
  2. HUMIRA [Suspect]
     Active Substance: ADALIMUMAB
     Route: 058
     Dates: start: 2018, end: 2019
  3. HUMIRA [Suspect]
     Active Substance: ADALIMUMAB
     Route: 058
     Dates: start: 2019

REACTIONS (13)
  - Diarrhoea [Not Recovered/Not Resolved]
  - Pain in extremity [Not Recovered/Not Resolved]
  - Foot deformity [Unknown]
  - Musculoskeletal procedural complication [Unknown]
  - Surgical failure [Unknown]
  - Skin discolouration [Unknown]
  - Insomnia [Unknown]
  - Tendon injury [Unknown]
  - Impaired work ability [Unknown]
  - Erythema [Unknown]
  - Impaired healing [Unknown]
  - Walking aid user [Unknown]
  - Nerve injury [Unknown]

NARRATIVE: CASE EVENT DATE: 201804
